FAERS Safety Report 25610456 (Version 3)
Quarter: 2025Q3

REPORT INFORMATION
  Report Type: Report from Study
  Country: CO (occurrence: CO)
  Receive Date: 20250728
  Receipt Date: 20250918
  Transmission Date: 20251021
  Serious: No
  Sender: TAKEDA
  Company Number: CO-TAKEDA-2024TUS091031

PATIENT
  Age: 2 Year
  Sex: Male
  Weight: 11 kg

DRUGS (4)
  1. HUMAN IMMUNOGLOBULIN G\HYALURONIDASE RECOMBINANT HUMAN [Suspect]
     Active Substance: HUMAN IMMUNOGLOBULIN G\HYALURONIDASE (HUMAN RECOMBINANT)
     Indication: Immunodeficiency
     Dosage: 4.4 GRAM, MONTHLY
     Dates: start: 20240815
  2. HUMAN IMMUNOGLOBULIN G\HYALURONIDASE RECOMBINANT HUMAN [Suspect]
     Active Substance: HUMAN IMMUNOGLOBULIN G\HYALURONIDASE (HUMAN RECOMBINANT)
     Indication: Primary immunodeficiency syndrome
     Dosage: 5 GRAM, MONTHLY
  3. AZITHROMYCIN [Concomitant]
     Active Substance: AZITHROMYCIN
  4. NAPROXEN [Concomitant]
     Active Substance: NAPROXEN

REACTIONS (28)
  - Tongue exfoliation [Unknown]
  - Inappropriate schedule of product administration [Unknown]
  - Influenza [Recovered/Resolved]
  - Respiratory tract infection [Unknown]
  - Secretion discharge [Unknown]
  - Glossodynia [Unknown]
  - Tongue injury [Unknown]
  - Product dose omission issue [Unknown]
  - Treatment noncompliance [Unknown]
  - Somnolence [Recovered/Resolved]
  - Weight increased [Unknown]
  - Body height increased [Unknown]
  - Product prescribing error [Unknown]
  - Incorrect dose administered [Unknown]
  - Oropharyngeal plaque [Recovered/Resolved]
  - Ear infection [Recovered/Resolved]
  - Crying [Not Recovered/Not Resolved]
  - Oral papule [Unknown]
  - Body height decreased [Unknown]
  - Insomnia [Not Recovered/Not Resolved]
  - Decreased appetite [Not Recovered/Not Resolved]
  - Cough [Unknown]
  - Diarrhoea [Not Recovered/Not Resolved]
  - Asthenia [Recovering/Resolving]
  - Pyrexia [Recovered/Resolved]
  - Influenza like illness [Unknown]
  - Vomiting [Recovered/Resolved]
  - Rash [Not Recovered/Not Resolved]

NARRATIVE: CASE EVENT DATE: 20240907
